FAERS Safety Report 7285200-8 (Version None)
Quarter: 2011Q1

REPORT INFORMATION
  Report Type: 
  Country: None (occurrence: None)
  Receive Date: 20110210
  Receipt Date: 20110131
  Transmission Date: 20110831
  Serious: Yes (Hospitalization)
  Sender: FDA-Public Use
  Company Number: US-MPIJNJ-2011-00414

PATIENT
  Age: 55 Year
  Sex: Male
  Weight: 93.6 kg

DRUGS (2)
  1. DEXAMETHASONE [Suspect]
     Indication: MULTIPLE MYELOMA
     Dosage: 40 MG, 1/WEEK
     Route: 048
     Dates: start: 20100804
  2. VELCADE [Suspect]
     Indication: MULTIPLE MYELOMA
     Dosage: 25 MG, QD
     Dates: start: 20100804

REACTIONS (9)
  - CYTOMEGALOVIRUS VIRAEMIA [None]
  - MUSCULOSKELETAL PAIN [None]
  - BACTERAEMIA [None]
  - OSTEOLYSIS [None]
  - COMPRESSION FRACTURE [None]
  - DEEP VEIN THROMBOSIS [None]
  - HYPERTENSION [None]
  - COLLAPSE OF LUNG [None]
  - MULTIPLE MYELOMA [None]
